FAERS Safety Report 9845895 (Version 1)
Quarter: 2014Q1

REPORT INFORMATION
  Report Type: Spontaneous
  Country: US (occurrence: US)
  Receive Date: 20140127
  Receipt Date: 20140127
  Transmission Date: 20141002
  Serious: Yes (Other)
  Sender: FDA-Public Use
  Company Number: US-PFIZER INC-2014023823

PATIENT
  Age: 34 Year
  Sex: Female
  Weight: 63.49 kg

DRUGS (6)
  1. DILANTIN-125 [Suspect]
     Indication: EPILEPSY
     Dosage: 300 MG, UNK
     Dates: start: 1990
  2. DILANTIN-125 [Suspect]
     Dosage: 240 MG, 1X/DAY
  3. DILANTIN-125 [Suspect]
     Dosage: 230 MG, 1X/DAY
  4. DILANTIN-125 [Suspect]
     Dosage: 220 MG, 1X/DAY
  5. DILANTIN-125 [Suspect]
     Dosage: UNK
  6. KEPPRA [Concomitant]
     Indication: EPILEPSY
     Dosage: 750 MG, 2X/DAY

REACTIONS (1)
  - Liver injury [Unknown]
